FAERS Safety Report 6388975-5 (Version None)
Quarter: 2009Q4

REPORT INFORMATION
  Report Type: 
  Country: None (occurrence: None)
  Receive Date: 20091001
  Receipt Date: 20090922
  Transmission Date: 20100525
  Serious: Yes (Hospitalization, Other)
  Sender: FDA-Public Use
  Company Number: ADR28122009

PATIENT
  Age: 40 Year
  Sex: Male

DRUGS (3)
  1. RAMIPRIL [Suspect]
     Indication: HYPERTENSION
     Dosage: 5 MG ORAL
     Route: 048
  2. ATENOLOL [Concomitant]
  3. DICLOFENAC [Concomitant]

REACTIONS (3)
  - AGITATION [None]
  - MALAISE [None]
  - PANCREATITIS ACUTE [None]
